FAERS Safety Report 5423663-0 (Version None)
Quarter: 2007Q3

REPORT INFORMATION
  Report Type: 
  Country: None (occurrence: None)
  Receive Date: 20070823
  Receipt Date: 20070816
  Transmission Date: 20080115
  Serious: Yes (Hospitalization)
  Sender: FDA-Public Use
  Company Number: A0673889A

PATIENT
  Age: 74 Year
  Sex: Male
  Weight: 66 kg

DRUGS (4)
  1. AVANDIA [Suspect]
     Indication: DIABETES MELLITUS
     Dosage: 4MG PER DAY
     Route: 048
     Dates: start: 20070301, end: 20070515
  2. DIGOXIN [Concomitant]
     Route: 065
     Dates: start: 19980101
  3. LOSARTAN POTASSIUM [Concomitant]
     Route: 065
     Dates: start: 20020101, end: 20070801
  4. CARVEDILOL [Concomitant]
     Route: 065
     Dates: start: 20030101

REACTIONS (2)
  - PLEURAL EFFUSION [None]
  - PNEUMONIA [None]
